FAERS Safety Report 19063873 (Version 2)
Quarter: 2021Q2

REPORT INFORMATION
  Report Type: Report from Study
  Country: US (occurrence: US)
  Receive Date: 20210326
  Receipt Date: 20210524
  Transmission Date: 20210717
  Serious: No
  Sender: FDA-Public Use
  Company Number: US-JNJFOC-20210335265

PATIENT
  Age: 64 Year
  Sex: Female

DRUGS (5)
  1. SPRAVATO [Suspect]
     Active Substance: ESKETAMINE
     Dosage: 84 MG, 5 TOTAL DOSES
     Dates: start: 20210218, end: 20210309
  2. SPRAVATO [Suspect]
     Active Substance: ESKETAMINE
     Indication: DEPRESSION
     Dosage: 56 MG, 10 TOTAL DOSES
     Dates: start: 20200204, end: 20200910
  3. SPRAVATO [Suspect]
     Active Substance: ESKETAMINE
     Dosage: UNKNOWN DOSE, 1 TOTAL DOSE
     Dates: start: 20210209, end: 20210209
  4. SPRAVATO [Suspect]
     Active Substance: ESKETAMINE
     Dosage: 84 MG, 20 TOTAL DOSES
     Dates: start: 20200915, end: 20210202
  5. SPRAVATO [Suspect]
     Active Substance: ESKETAMINE
     Dosage: CURRENT TREATMENT SESSION
     Dates: start: 20210316, end: 20210316

REACTIONS (1)
  - Dissociation [Recovered/Resolved]

NARRATIVE: CASE EVENT DATE: 20210316
